FAERS Safety Report 10009469 (Version 2)
Quarter: 2014Q1

REPORT INFORMATION
  Report Type: Spontaneous
  Country: US (occurrence: US)
  Receive Date: 20140313
  Receipt Date: 20140313
  Transmission Date: 20141002
  Serious: No
  Sender: FDA-Public Use
  Company Number: US-INCYTE CORPORATION-2012IN001352

PATIENT
  Age: 68 Year
  Sex: Female

DRUGS (5)
  1. JAKAFI [Suspect]
     Indication: MYELOFIBROSIS
     Dosage: 15 MG, BID
     Route: 048
     Dates: start: 20120623
  2. PREDNISONE [Concomitant]
     Dosage: 20 MG, QD
  3. SYNTHROID [Concomitant]
  4. COUMADIN [Concomitant]
  5. PROZAC [Concomitant]

REACTIONS (3)
  - Fatigue [Unknown]
  - Dizziness [Unknown]
  - Contusion [Unknown]
